FAERS Safety Report 9040925 (Version 1)
Quarter: 2013Q1

REPORT INFORMATION
  Report Type: Report from Study
  Country: US (occurrence: US)
  Receive Date: 20130129
  Receipt Date: 20130129
  Transmission Date: 20140127
  Serious: No
  Sender: FDA-Public Use
  Company Number: US-ABBOTT-12P-163-0902013-00

PATIENT
  Age: 51 Year
  Sex: Female

DRUGS (11)
  1. HUMIRA 40 MG/0.8 ML PEN [Suspect]
     Indication: CROHN^S DISEASE
     Dosage: LOADING DOSE
     Route: 058
     Dates: start: 20120204, end: 20120204
  2. HUMIRA 40 MG/0.8 ML PEN [Suspect]
  3. ADVAIR [Concomitant]
     Indication: ASTHMA
     Dosage: 250.50, 1 IN 1 D
  4. FLONASE [Concomitant]
     Indication: ASTHMA
     Dosage: TWO SPRAYS DAILY EACH NOSTRIL
  5. BENICAR HCT [Concomitant]
     Indication: HYPERTENSION
  6. PRAVASTATIN [Concomitant]
     Indication: BLOOD CHOLESTEROL INCREASED
  7. PRILOSEC [Concomitant]
     Indication: GASTROOESOPHAGEAL REFLUX DISEASE
  8. IMURAN [Concomitant]
     Indication: CROHN^S DISEASE
  9. PENTASA [Concomitant]
     Indication: PRODUCT USED FOR UNKNOWN INDICATION
  10. VENOFER [Concomitant]
     Indication: PRODUCT USED FOR UNKNOWN INDICATION
     Dosage: 1 IN 1 M, ALONG WITH B12 INJECTION
     Route: 042
  11. B12 [Concomitant]
     Indication: ANAEMIA
     Route: 050

REACTIONS (1)
  - Injection site pain [Recovered/Resolved]
